FAERS Safety Report 20606917 (Version 1)
Quarter: 2022Q1

REPORT INFORMATION
  Report Type: Spontaneous
  Country: US (occurrence: None)
  Receive Date: 20220316
  Receipt Date: 20220316
  Transmission Date: 20220423
  Serious: No
  Sender: FDA-Public Use
  Company Number: None

PATIENT
  Sex: Male
  Weight: 81.65 kg

DRUGS (16)
  1. ABIRATERONE ACETATE [Suspect]
     Active Substance: ABIRATERONE ACETATE
     Indication: Prostate cancer
     Dosage: FREQUENCY : DAILY;?
     Route: 048
  2. BICALUTAMIDE [Concomitant]
     Active Substance: BICALUTAMIDE
  3. CALCIUM CARBONATE\VITAMIN D [Concomitant]
     Active Substance: CALCIUM CARBONATE\VITAMIN D
  4. FENOFIBRATE [Concomitant]
  5. GLIMEPIRIDE [Concomitant]
  6. LEVOTHYROXINE SODIUM [Concomitant]
  7. LISINOPRIL [Concomitant]
     Active Substance: LISINOPRIL
  8. MAXITROL [Concomitant]
  9. LOVAZA [Concomitant]
  10. SIMVASTATIN [Concomitant]
     Active Substance: SIMVASTATIN
  11. YONSA [Concomitant]
     Active Substance: ABIRATERONE ACETATE
  12. METHYLPREDNISOLONE [Concomitant]
  13. SYNVISC [Concomitant]
     Active Substance: HYLAN G-F 20
  14. HYDROCHLOROTHIAZIDE [Concomitant]
  15. TUMS [Concomitant]
  16. POTASSIUM CHLORIDE [Concomitant]
     Active Substance: POTASSIUM CHLORIDE

REACTIONS (1)
  - Disease progression [None]
